FAERS Safety Report 10129638 (Version 1)
Quarter: 2014Q2

REPORT INFORMATION
  Report Type: Spontaneous
  Country: AT (occurrence: AT)
  Receive Date: 20140428
  Receipt Date: 20140428
  Transmission Date: 20141212
  Serious: Yes (Hospitalization, Other)
  Sender: FDA-Public Use
  Company Number: AT-PFIZER INC-2014112522

PATIENT
  Age: 63 Year
  Sex: Male

DRUGS (5)
  1. LORAZEPAM [Suspect]
     Indication: SCHIZOPHRENIA, PARANOID TYPE
     Dosage: 3 MG, DAILY
  2. PREGABALIN [Suspect]
     Indication: SCHIZOPHRENIA, PARANOID TYPE
     Dosage: 300 MG, DAILY
  3. CLOZAPINE [Suspect]
     Indication: SCHIZOPHRENIA, PARANOID TYPE
     Dosage: 50 MG, DAILY
  4. CLOZAPINE [Suspect]
     Dosage: 150 MG, DAILY
  5. GABAPENTIN [Concomitant]
     Indication: SCHIZOPHRENIA, PARANOID TYPE
     Dosage: 600 MG, DAILY

REACTIONS (6)
  - Pulmonary embolism [Not Recovered/Not Resolved]
  - Pneumonia aspiration [Not Recovered/Not Resolved]
  - Sedation [Unknown]
  - Salivary hypersecretion [Unknown]
  - Tachypnoea [Unknown]
  - Dyspnoea [Unknown]
